FAERS Safety Report 8406607-9 (Version None)
Quarter: 2012Q2

REPORT INFORMATION
  Report Type: 
  Country: None (occurrence: None)
  Receive Date: 20120604
  Receipt Date: 20120523
  Transmission Date: 20120825
  Serious: Yes (Hospitalization, Other)
  Sender: FDA-Public Use
  Company Number: DE-ELI_LILLY_AND_COMPANY-DE201205007862

PATIENT
  Sex: Female

DRUGS (3)
  1. FORTEO [Suspect]
     Indication: OSTEOPOROSIS
     Dosage: UNK, QD
     Route: 058
     Dates: start: 20110313, end: 20120101
  2. ASTONIN [Concomitant]
  3. RAMIPRIL [Concomitant]

REACTIONS (4)
  - FALL [None]
  - HOSPITALISATION [None]
  - LIGAMENT RUPTURE [None]
  - SYNCOPE [None]
